FAERS Safety Report 13363305 (Version 1)
Quarter: 2017Q1

REPORT INFORMATION
  Report Type: Spontaneous
  Country: US (occurrence: US)
  Receive Date: 20170323
  Receipt Date: 20170323
  Transmission Date: 20170429
  Serious: Yes (Hospitalization)
  Sender: FDA-Public Use
  Company Number: US-BAYER-2017-049423

PATIENT
  Age: 27 Year
  Sex: Female
  Weight: 57.6 kg

DRUGS (3)
  1. TRESIBA [Concomitant]
     Active Substance: INSULIN DEGLUDEC
     Dosage: UNK
  2. ALKA-SELTZER PM [Suspect]
     Active Substance: ASPIRIN\DIPHENHYDRAMINE
     Indication: INSOMNIA
     Dosage: 2 DF, ONCE
     Route: 048
     Dates: start: 20170218, end: 20170218
  3. NOVOLOG [Concomitant]
     Active Substance: INSULIN ASPART
     Dosage: UNK

REACTIONS (5)
  - Loss of consciousness [Recovered/Resolved]
  - Drug ineffective [None]
  - Product use issue [Recovered/Resolved]
  - Adverse drug reaction [Unknown]
  - Dizziness [Recovered/Resolved]

NARRATIVE: CASE EVENT DATE: 20170218
